FAERS Safety Report 23043510 (Version 5)
Quarter: 2023Q4

REPORT INFORMATION
  Report Type: Spontaneous
  Country: CA (occurrence: CA)
  Receive Date: 20231009
  Receipt Date: 20231211
  Transmission Date: 20240110
  Serious: Yes (Other)
  Sender: FDA-Public Use
  Company Number: CA-CELLTRION INC.-2023CA019518

PATIENT

DRUGS (10)
  1. INFLECTRA [Suspect]
     Active Substance: INFLIXIMAB-DYYB
     Indication: Crohn^s disease
     Dosage: 1 DF, DOSAGE INFO: UNKNOWN
     Route: 042
     Dates: start: 202204, end: 202211
  2. INFLECTRA [Suspect]
     Active Substance: INFLIXIMAB-DYYB
     Dosage: 1 DF, EVERY 4 WEEK, DOSAGE INFO: UNKNOWN
     Route: 042
     Dates: start: 202211
  3. INFLECTRA [Suspect]
     Active Substance: INFLIXIMAB-DYYB
     Dosage: 400 MG, EVERY 4 WEEK
     Route: 042
     Dates: start: 20231003
  4. INFLECTRA [Suspect]
     Active Substance: INFLIXIMAB-DYYB
     Dosage: 400 MG, EVERY 4 WEEK( 8 WEEKS AND 1 DAY   AFTER LAST TREATMENT )
     Route: 042
     Dates: start: 20231129
  5. DEXLANSOPRAZOLE [Concomitant]
     Active Substance: DEXLANSOPRAZOLE
     Dosage: 30 MG, DAILYX1MTH30)(30 MIN BEFORE BREAKFAST),DELAYED RELEASE, BIPHASIC
     Route: 048
  6. FOLIC ACID [Concomitant]
     Active Substance: FOLIC ACID
     Dosage: 5 MG, DAILY X 3 MTH30 (5 MG ON SATURDAY)
     Route: 048
  7. IMURAN [Concomitant]
     Active Substance: AZATHIOPRINE
     Dosage: UNK, STARTED AROUND 2010/2009 AND DISCONTINUED IN 2019/2020
  8. IMURAN [Concomitant]
     Active Substance: AZATHIOPRINE
     Dosage: 50 MG (2 TABLET(S) ONCE DAILY X 3 MTH30)
  9. SULFASALAZINE [Concomitant]
     Active Substance: SULFASALAZINE
     Indication: Arthropathy
     Dosage: UNK, DISCONTINUED BECAUSE NO EFFECT.
     Dates: start: 2020
  10. SULFASALAZINE [Concomitant]
     Active Substance: SULFASALAZINE
     Dosage: 500MG, 3XDAY, DELAYED RELEASE(ENTERIC COATED)[2 TABLET 3XDAY/ X 3 MTH30] [TAKE 2 TABSTID]
     Route: 048

REACTIONS (17)
  - Intestinal obstruction [Not Recovered/Not Resolved]
  - Intestinal stenosis [Not Recovered/Not Resolved]
  - Condition aggravated [Not Recovered/Not Resolved]
  - Abdominal distension [Not Recovered/Not Resolved]
  - Constipation [Not Recovered/Not Resolved]
  - Hepatic cyst [Unknown]
  - Diverticulum intestinal [Unknown]
  - Dyspepsia [Unknown]
  - Eructation [Unknown]
  - Hepatic steatosis [Unknown]
  - Aphthous ulcer [Unknown]
  - Arthralgia [Not Recovered/Not Resolved]
  - Hepatic enzyme increased [Unknown]
  - Alanine aminotransferase increased [Unknown]
  - COVID-19 [Recovered/Resolved]
  - Off label use [Unknown]
  - Inappropriate schedule of product administration [Unknown]

NARRATIVE: CASE EVENT DATE: 20221101
